FAERS Safety Report 19098924 (Version 1)
Quarter: 2021Q2

REPORT INFORMATION
  Report Type: Spontaneous
  Country: NO (occurrence: NO)
  Receive Date: 20210406
  Receipt Date: 20210406
  Transmission Date: 20210717
  Serious: Yes (Hospitalization)
  Sender: FDA-Public Use
  Company Number: NO-ASTRAZENECA-2021A195192

PATIENT
  Age: 87 Year
  Sex: Female

DRUGS (7)
  1. ENALAPRIL KRKA [Concomitant]
     Active Substance: ENALAPRIL MALEATE
  2. LIPITOR [Concomitant]
     Active Substance: ATORVASTATIN CALCIUM
  3. FORXIGA [Suspect]
     Active Substance: DAPAGLIFLOZIN
     Route: 048
     Dates: start: 20210224, end: 20210307
  4. PLAVIX [Concomitant]
     Active Substance: CLOPIDOGREL BISULFATE
  5. BURINEX [Concomitant]
     Active Substance: BUMETANIDE
  6. NORVASC [Concomitant]
     Active Substance: AMLODIPINE BESYLATE
  7. METOPROLOL. [Concomitant]
     Active Substance: METOPROLOL

REACTIONS (2)
  - Atrioventricular block complete [Unknown]
  - Hyponatraemia [Recovering/Resolving]

NARRATIVE: CASE EVENT DATE: 20210307
